FAERS Safety Report 8816796 (Version 1)
Quarter: 2012Q4

REPORT INFORMATION
  Report Type: Spontaneous
  Country: DK (occurrence: None)
  Receive Date: 20121001
  Receipt Date: 20121001
  Transmission Date: 20130627
  Serious: Yes (Death, Life-Threatening, Hospitalization, Other)
  Sender: FDA-Public Use
  Company Number: 2012MA011695

PATIENT
  Age: 84 Year
  Sex: Male

DRUGS (1)
  1. METFORMIN HYDROCHLORIDE [Suspect]
     Indication: TYPE 2 DIABETES MELLITUS
     Route: 048
     Dates: start: 20110803, end: 20110808

REACTIONS (4)
  - Lactic acidosis [None]
  - Renal failure acute [None]
  - Pneumonia [None]
  - Septic shock [None]
